FAERS Safety Report 17532422 (Version 1)
Quarter: 2020Q1

REPORT INFORMATION
  Report Type: Report from Study
  Country: US (occurrence: US)
  Receive Date: 20200312
  Receipt Date: 20200312
  Transmission Date: 20200409
  Serious: Yes (Other)
  Sender: FDA-Public Use
  Company Number: US-GILEAD-2020-0453369

PATIENT
  Age: 58 Year
  Sex: Male

DRUGS (2)
  1. AMBRISENTAN [Suspect]
     Active Substance: AMBRISENTAN
     Indication: PRODUCT USED FOR UNKNOWN INDICATION
     Dosage: 10 MG, QD
     Route: 048
     Dates: start: 20120717
  2. TYVASO [Concomitant]
     Active Substance: TREPROSTINIL

REACTIONS (3)
  - Prostatic operation [Unknown]
  - General physical condition abnormal [Not Recovered/Not Resolved]
  - Bedridden [Not Recovered/Not Resolved]
